FAERS Safety Report 8464076-7 (Version None)
Quarter: 2012Q2

REPORT INFORMATION
  Report Type: 
  Country: None (occurrence: None)
  Receive Date: 20120625
  Receipt Date: 20120619
  Transmission Date: 20120825
  Serious: Yes (Hospitalization, Other)
  Sender: FDA-Public Use
  Company Number: US-AMGEN-USASP2012016650

PATIENT
  Age: 68 Year
  Sex: Female

DRUGS (2)
  1. ENBREL [Suspect]
     Indication: RHEUMATOID ARTHRITIS
     Dosage: 50 MG, QWK
     Dates: start: 20110601
  2. ENBREL [Suspect]
     Dosage: 50 MG, QWK
     Dates: start: 20110101

REACTIONS (9)
  - PAIN IN EXTREMITY [None]
  - INJECTION SITE PAIN [None]
  - ATRIAL FIBRILLATION [None]
  - ARTHRALGIA [None]
  - OEDEMA PERIPHERAL [None]
  - KNEE ARTHROPLASTY [None]
  - ARTHROSCOPY [None]
  - BLOOD TEST ABNORMAL [None]
  - INJECTION SITE HAEMATOMA [None]
